FAERS Safety Report 12654460 (Version 2)
Quarter: 2016Q4

REPORT INFORMATION
  Report Type: Spontaneous
  Country: US (occurrence: US)
  Receive Date: 20160816
  Receipt Date: 20161011
  Transmission Date: 20170207
  Serious: No
  Sender: FDA-Public Use
  Company Number: US-BEH-2016072188

PATIENT
  Age: 36 Year
  Sex: Female
  Weight: 73 kg

DRUGS (6)
  1. HUMATE-P [Suspect]
     Active Substance: HUMAN COAGULATION FACTOR VIII/VON WILLEBRAND FACTOR COMPLEX
     Indication: VON WILLEBRAND^S DISEASE
     Dosage: 2500 IU DAILY X 7THEN ALT DAYS
     Route: 065
  2. HUMATE-P [Suspect]
     Active Substance: HUMAN COAGULATION FACTOR VIII/VON WILLEBRAND FACTOR COMPLEX
     Dosage: 2500 IU DAILY X 7THEN ALT DAYS
     Route: 065
  3. ZOLOFT [Concomitant]
     Active Substance: SERTRALINE HYDROCHLORIDE
     Dosage: 100 MG, UNK
     Route: 065
  4. ALPRAZOLAM. [Concomitant]
     Active Substance: ALPRAZOLAM
     Dosage: 3 MG, BEDTIME
     Route: 065
  5. HUMATE-P [Suspect]
     Active Substance: HUMAN COAGULATION FACTOR VIII/VON WILLEBRAND FACTOR COMPLEX
     Dosage: 500 UNITS AND 1942 UNITS (2500 IU DAILY X 7THEN ALT DAYS)
     Route: 065
     Dates: start: 20160402, end: 20160416
  6. BUSPIRONE [Concomitant]
     Active Substance: BUSPIRONE HYDROCHLORIDE
     Dosage: 30 MG, BID
     Route: 065

REACTIONS (2)
  - Catheter site pruritus [Unknown]
  - Catheter site inflammation [Unknown]

NARRATIVE: CASE EVENT DATE: 20160412
